FAERS Safety Report 4843978-4 (Version None)
Quarter: 2005Q4

REPORT INFORMATION
  Report Type: 
  Country: None (occurrence: None)
  Receive Date: 20051130
  Receipt Date: 20051130
  Transmission Date: 20060501
  Serious: Yes (Hospitalization)
  Sender: FDA-Public Use
  Company Number: None

PATIENT
  Age: 63 Year
  Sex: Male
  Weight: 64.9 kg

DRUGS (5)
  1. TAXOTERE [Suspect]
     Indication: LUNG CANCER METASTATIC
     Dosage: 45.5 MG Q WEEK IV DRIP
     Route: 041
     Dates: start: 20050817, end: 20051116
  2. LOVENOX [Concomitant]
  3. REGLAN [Concomitant]
  4. PROTONIX [Concomitant]
  5. NEGACE [Concomitant]

REACTIONS (5)
  - ANAEMIA [None]
  - BODY TEMPERATURE INCREASED [None]
  - DYSPNOEA EXERTIONAL [None]
  - FATIGUE [None]
  - OCCULT BLOOD POSITIVE [None]
